FAERS Safety Report 14509790 (Version 1)
Quarter: 2018Q1

REPORT INFORMATION
  Report Type: Spontaneous
  Country: RU (occurrence: RU)
  Receive Date: 20180209
  Receipt Date: 20180209
  Transmission Date: 20180509
  Serious: Yes (Other)
  Sender: FDA-Public Use
  Company Number: RU-009507513-1802RUS004467

PATIENT
  Sex: Male

DRUGS (4)
  1. REBETOL [Suspect]
     Active Substance: RIBAVIRIN
     Dosage: UNK
     Route: 048
     Dates: start: 2011, end: 2011
  2. REBETOL [Suspect]
     Active Substance: RIBAVIRIN
     Indication: ANTIVIRAL TREATMENT
     Dosage: UNK
     Route: 048
     Dates: start: 2006, end: 2006
  3. PEGINTRON [Suspect]
     Active Substance: PEGINTERFERON ALFA-2B
     Indication: ANTIVIRAL TREATMENT
     Dosage: UNK
     Dates: start: 2006, end: 2006
  4. PEGINTRON [Suspect]
     Active Substance: PEGINTERFERON ALFA-2B
     Dosage: UNK
     Dates: start: 2011, end: 2011

REACTIONS (4)
  - Arrhythmia [Unknown]
  - Depression [Unknown]
  - Arrhythmia [Unknown]
  - Depression [Unknown]

NARRATIVE: CASE EVENT DATE: 1997
